FAERS Safety Report 6430244-9 (Version None)
Quarter: 2009Q4

REPORT INFORMATION
  Report Type: 
  Country: None (occurrence: None)
  Receive Date: 20091106
  Receipt Date: 20091029
  Transmission Date: 20100525
  Serious: Yes (Other)
  Sender: FDA-Public Use
  Company Number: US-ROCHE-665845

PATIENT
  Sex: Male
  Weight: 66.7 kg

DRUGS (4)
  1. NAPROSYN [Suspect]
     Route: 065
  2. PEGASYS [Suspect]
     Indication: HEPATITIS C
     Route: 058
     Dates: start: 20081201, end: 20091009
  3. RIBAVIRIN [Suspect]
     Indication: HEPATITIS C
     Dosage: DOSE: 400 MG AT AM AND 600 MG AT PM
     Route: 048
  4. WELLBUTRIN [Concomitant]

REACTIONS (5)
  - COUGH [None]
  - DRUG INEFFECTIVE [None]
  - INTERSTITIAL LUNG DISEASE [None]
  - LUNG DISORDER [None]
  - PYREXIA [None]
